FAERS Safety Report 7945834-1 (Version None)
Quarter: 2011Q4

REPORT INFORMATION
  Report Type: 
  Country: None (occurrence: None)
  Receive Date: 20111129
  Receipt Date: 20111117
  Transmission Date: 20120403
  Serious: Yes (Other)
  Sender: FDA-Public Use
  Company Number: PHHY2011BR93330

PATIENT
  Sex: Female

DRUGS (5)
  1. EXFORGE [Suspect]
     Indication: HYPERTENSION
     Dosage: 1 DF(80/5 MG), QD
  2. SIMVASTATIN [Concomitant]
     Indication: BLOOD CHOLESTEROL
     Dosage: 20 MG, QD AT NIGHT
  3. METFORMIN HCL [Concomitant]
     Indication: DIABETES MELLITUS
     Dosage: 3 DF (850 MG), DAILY
  4. GALVUS MET [Suspect]
  5. GLYBURIDE [Concomitant]
     Indication: BLOOD GLUCOSE
     Dosage: 4 DF (5 MG), DAILY

REACTIONS (3)
  - HYPOAESTHESIA [None]
  - BLOOD PRESSURE INCREASED [None]
  - DIABETES MELLITUS [None]
